FAERS Safety Report 6466601-4 (Version None)
Quarter: 2009Q4

REPORT INFORMATION
  Report Type: 
  Country: None (occurrence: None)
  Receive Date: 20091127
  Receipt Date: 20091118
  Transmission Date: 20100525
  Serious: No
  Sender: FDA-Public Use
  Company Number: 1-20766308

PATIENT
  Age: 6 Month

DRUGS (4)
  1. ULTIVA [Suspect]
     Indication: APNOEA
     Dosage: 3 MCG/KG, ONCE, INTRAVENOUS
     Route: 042
  2. SEVOFLURANE [Concomitant]
  3. OXYGEN [Concomitant]
  4. GLYCOPYRROLATE [Concomitant]

REACTIONS (1)
  - HYPOTENSION [None]
